FAERS Safety Report 16196254 (Version 1)
Quarter: 2019Q2

REPORT INFORMATION
  Report Type: Spontaneous
  Country: US (occurrence: US)
  Receive Date: 20190415
  Receipt Date: 20190415
  Transmission Date: 20190711
  Serious: Yes (Other)
  Sender: FDA-Public Use
  Company Number: US-HIKMA PHARMACEUTICALS USA INC.-US-H14001-19-02391

PATIENT
  Age: 41 Year
  Sex: Female

DRUGS (2)
  1. DAUNORUBICIN [Suspect]
     Active Substance: DAUNORUBICIN
     Indication: CHEMOTHERAPY
     Route: 065
  2. CYTARABINE. [Suspect]
     Active Substance: CYTARABINE
     Indication: CHEMOTHERAPY
     Route: 065

REACTIONS (8)
  - Klebsiella infection [Unknown]
  - Mucosal inflammation [Unknown]
  - Cytomegalovirus infection [Unknown]
  - Oesophageal candidiasis [Unknown]
  - Neutropenic colitis [Unknown]
  - Febrile neutropenia [Recovered/Resolved]
  - Vascular device infection [Unknown]
  - Blastocystis infection [Unknown]
